FAERS Safety Report 4804126-X (Version None)
Quarter: 2005Q4

REPORT INFORMATION
  Report Type: 
  Country: None (occurrence: None)
  Receive Date: 20051014
  Receipt Date: 20051006
  Transmission Date: 20060501
  Serious: Yes (Death, Other)
  Sender: FDA-Public Use
  Company Number: 2005-10-0263

PATIENT
  Age: 65 Year
  Sex: Male

DRUGS (2)
  1. INTRON A [Suspect]
     Indication: RENAL CELL CARCINOMA STAGE UNSPECIFIED
     Dosage: 5 CYCLES (S)
  2. IRESSA [Suspect]
     Indication: RENAL CELL CARCINOMA STAGE UNSPECIFIED
     Dosage: ORAL/5 CYCLE (S)
     Route: 048

REACTIONS (3)
  - PULMONARY EMBOLISM [None]
  - RENAL IMPAIRMENT [None]
  - RESPIRATORY FAILURE [None]
